FAERS Safety Report 8394082-2 (Version None)
Quarter: 2012Q2

REPORT INFORMATION
  Report Type: 
  Country: None (occurrence: None)
  Receive Date: 20120530
  Receipt Date: 20120521
  Transmission Date: 20120825
  Serious: Yes (Other)
  Sender: FDA-Public Use
  Company Number: US-JNJFOC-20100800997

PATIENT
  Sex: Male

DRUGS (1)
  1. LEVAQUIN [Suspect]
     Indication: INFECTION
     Route: 048

REACTIONS (5)
  - TENDON DISORDER [None]
  - OSTEOARTHRITIS [None]
  - MENISCUS LESION [None]
  - TENDON RUPTURE [None]
  - ROTATOR CUFF SYNDROME [None]
